FAERS Safety Report 17077915 (Version 1)
Quarter: 2019Q4

REPORT INFORMATION
  Report Type: Spontaneous
  Country: US (occurrence: US)
  Receive Date: 20191126
  Receipt Date: 20191126
  Transmission Date: 20200122
  Serious: Yes (Other)
  Sender: FDA-Public Use
  Company Number: US-PURDUE-USA-2019-0149207

PATIENT
  Sex: Female

DRUGS (4)
  1. OXYCONTIN [Suspect]
     Active Substance: OXYCODONE HYDROCHLORIDE
     Indication: PAIN
     Dosage: UNK
     Route: 048
     Dates: start: 2015
  2. TORADOL [Suspect]
     Active Substance: KETOROLAC TROMETHAMINE
     Indication: PAIN
     Dosage: UNK
     Route: 065
     Dates: start: 201510
  3. PERCOCET                           /00446701/ [Suspect]
     Active Substance: ACETAMINOPHEN\OXYCODONE HYDROCHLORIDE\OXYCODONE TEREPHTHALATE
     Indication: PAIN
     Dosage: UNK
     Route: 048
     Dates: start: 201510
  4. CORTISONE [Suspect]
     Active Substance: CORTISONE
     Indication: PAIN
     Dosage: INJECTION
     Route: 050
     Dates: start: 20151211

REACTIONS (10)
  - Musculoskeletal pain [Unknown]
  - Drug ineffective [Unknown]
  - Concussion [Unknown]
  - Pain [Unknown]
  - Palpitations [Unknown]
  - Fall [Recovered/Resolved]
  - Bedridden [Recovered/Resolved]
  - Periarthritis [Unknown]
  - Mobility decreased [Unknown]
  - Ill-defined disorder [Unknown]

NARRATIVE: CASE EVENT DATE: 201510
